FAERS Safety Report 18377242 (Version 2)
Quarter: 2020Q4

REPORT INFORMATION
  Report Type: Spontaneous
  Country: HR (occurrence: HR)
  Receive Date: 20201013
  Receipt Date: 20201130
  Transmission Date: 20210114
  Serious: Yes (Hospitalization)
  Sender: FDA-Public Use
  Company Number: HR-JNJFOC-20201014027

PATIENT
  Sex: Female

DRUGS (17)
  1. FUROSEMIDE. [Concomitant]
     Active Substance: FUROSEMIDE
     Dosage: 40 MG
  2. PANTOPRAZOLE [Concomitant]
     Active Substance: PANTOPRAZOLE
     Dosage: 40 MG
  3. LERCANIDIPINE [Concomitant]
     Active Substance: LERCANIDIPINE
     Dosage: 10 MG
  4. KALINOR [POTASSIUM BICARBONATE;POTASSIUM CITRATE] [Concomitant]
     Active Substance: POTASSIUM BICARBONATE\POTASSIUM CITRATE
     Dosage: UNK
  5. RIVAROXABAN [Suspect]
     Active Substance: RIVAROXABAN
     Route: 048
  6. VALSARTAN. [Concomitant]
     Active Substance: VALSARTAN
     Dosage: 160 MG
  7. EPLERENONE. [Concomitant]
     Active Substance: EPLERENONE
     Dosage: 50 UNK
  8. AMIDARONE [Concomitant]
     Active Substance: AMIODARONE
     Dosage: 200 MG
  9. METHYL-DIGOXIN [Concomitant]
     Active Substance: METILDIGOXIN
     Dosage: 0.5 MG_0.2 MG
     Route: 042
  10. OXYGEN. [Concomitant]
     Active Substance: OXYGEN
     Dosage: UNK
  11. EPLERENONE. [Concomitant]
     Active Substance: EPLERENONE
     Dosage: 25 MG
  12. RIVAROXABAN [Suspect]
     Active Substance: RIVAROXABAN
     Indication: ATRIAL FIBRILLATION
     Dosage: 20 MG
     Route: 048
  13. ISMN [Concomitant]
     Active Substance: ISOSORBIDE MONONITRATE
     Dosage: 20 MG
  14. NEBIVOLOL. [Concomitant]
     Active Substance: NEBIVOLOL
     Dosage: 5 MG
  15. FUROSEMIDE. [Concomitant]
     Active Substance: FUROSEMIDE
     Dosage: 80 UNK
     Route: 042
  16. IBUPROFEN. [Concomitant]
     Active Substance: IBUPROFEN
     Dosage: 400 MG
  17. ENOXAPARIN [Concomitant]
     Active Substance: ENOXAPARIN
     Dosage: 8000 IU
     Route: 058

REACTIONS (1)
  - Glomerular filtration rate decreased [Unknown]
